FAERS Safety Report 9578431 (Version 1)
Quarter: 2013Q4

REPORT INFORMATION
  Report Type: Spontaneous
  Country: US (occurrence: US)
  Receive Date: 20131001
  Receipt Date: 20131001
  Transmission Date: 20140711
  Serious: No
  Sender: FDA-Public Use
  Company Number: US-AMGEN-USASP2013012934

PATIENT
  Sex: Female

DRUGS (11)
  1. ENBREL [Suspect]
     Indication: RHEUMATOID ARTHRITIS
     Dosage: 50 MG, QWK
  2. NEXIUM                             /01479302/ [Concomitant]
     Dosage: 20 MG, UNK
  3. CIPROFLOXACIN [Concomitant]
     Dosage: 0.2 %, UNK
  4. VITAMIN E                          /00110501/ [Concomitant]
     Dosage: UNK
  5. VITAMIN B COMPLEX [Concomitant]
     Dosage: UNK
  6. VITAMIN D                          /00107901/ [Concomitant]
     Dosage: 1000 UNIT, UNK
  7. CALCIUM + VITAMIN D                /01483701/ [Concomitant]
     Dosage: UNK
  8. FLAXSEED OIL [Concomitant]
     Dosage: UNK
  9. FISH OIL [Concomitant]
     Dosage: UNK
  10. VITAMIN C                          /00008001/ [Concomitant]
     Dosage: 500 MG, UNK
  11. MULTIVITAMINS, PLAIN [Concomitant]
     Dosage: UNK

REACTIONS (1)
  - Nodule [Unknown]
